FAERS Safety Report 21128461 (Version 14)
Quarter: 2025Q1

REPORT INFORMATION
  Report Type: Report from Study
  Country: US (occurrence: US)
  Receive Date: 20220725
  Receipt Date: 20250306
  Transmission Date: 20250409
  Serious: Yes (Life-Threatening, Hospitalization, Other)
  Sender: TAKEDA
  Company Number: US-TAKEDA-US201922908

PATIENT
  Age: 15 Year
  Sex: Female
  Weight: 49 kg

DRUGS (13)
  1. LANADELUMAB [Suspect]
     Active Substance: LANADELUMAB
     Indication: Prophylaxis
     Dosage: 300 MILLIGRAM, Q2WEEKS
  2. LANADELUMAB [Suspect]
     Active Substance: LANADELUMAB
     Indication: Hereditary angioedema
     Dosage: 300 MILLIGRAM, Q4WEEKS
  3. LANADELUMAB [Suspect]
     Active Substance: LANADELUMAB
     Dosage: UNK UNK, Q4WEEKS
  4. FIRAZYR [Suspect]
     Active Substance: ICATIBANT ACETATE
     Indication: Immune system disorder
  5. FIRAZYR [Suspect]
     Active Substance: ICATIBANT ACETATE
  6. RUCONEST [Suspect]
     Active Substance: CONESTAT ALFA
     Indication: Product used for unknown indication
  7. SINGULAIR [Concomitant]
     Active Substance: MONTELUKAST SODIUM
  8. GASTROCROM [Concomitant]
     Active Substance: CROMOLYN SODIUM
  9. CETIRIZINE HYDROCHLORIDE [Concomitant]
     Active Substance: CETIRIZINE HYDROCHLORIDE
  10. ASMANEX [Concomitant]
     Active Substance: MOMETASONE FUROATE
  11. OMEPRAZOLE [Concomitant]
     Active Substance: OMEPRAZOLE
  12. VITAMIN D NOS [Concomitant]
     Active Substance: CHOLECALCIFEROL\ERGOCALCIFEROL
  13. ALLEGRA [Concomitant]
     Active Substance: FEXOFENADINE HYDROCHLORIDE

REACTIONS (22)
  - Hyperthermia [Recovering/Resolving]
  - Pharyngitis streptococcal [Recovered/Resolved]
  - Pain [Recovered/Resolved]
  - Bronchitis bacterial [Unknown]
  - Respiratory fume inhalation disorder [Unknown]
  - Burns first degree [Unknown]
  - Hereditary angioedema [Recovering/Resolving]
  - Contusion [Recovering/Resolving]
  - Joint injury [Recovering/Resolving]
  - Muscular weakness [Recovered/Resolved]
  - Road traffic accident [Recovering/Resolving]
  - Foot fracture [Recovering/Resolving]
  - Product packaging issue [Unknown]
  - Inappropriate schedule of product administration [Recovered/Resolved]
  - Product storage error [Unknown]
  - Influenza [Recovering/Resolving]
  - Product colour issue [Unknown]
  - Rash [Unknown]
  - Injection site warmth [Unknown]
  - Injection site swelling [Unknown]
  - Injection site pain [Recovered/Resolved]
  - Injection site erythema [Unknown]

NARRATIVE: CASE EVENT DATE: 20220815
